FAERS Safety Report 8375321-0 (Version None)
Quarter: 2012Q2

REPORT INFORMATION
  Report Type: 
  Country: None (occurrence: None)
  Receive Date: 20120522
  Receipt Date: 20120511
  Transmission Date: 20120825
  Serious: No
  Sender: FDA-Public Use
  Company Number: US-BIOGENIDEC-2012BI015768

PATIENT
  Sex: Female

DRUGS (2)
  1. TYSABRI [Suspect]
     Indication: MULTIPLE SCLEROSIS
     Route: 042
     Dates: start: 20061129
  2. AVONEX [Concomitant]
     Route: 030

REACTIONS (5)
  - OVARIAN CYST [None]
  - DRUG INEFFECTIVE [None]
  - MALAISE [None]
  - MOOD SWINGS [None]
  - PAIN IN EXTREMITY [None]
